FAERS Safety Report 22255657 (Version 1)
Quarter: 2023Q2

REPORT INFORMATION
  Report Type: Spontaneous
  Country: US (occurrence: US)
  Receive Date: 20230426
  Receipt Date: 20230426
  Transmission Date: 20230722
  Serious: Yes (Other)
  Sender: FDA-Public Use
  Company Number: US-ANIPHARMA-2022-US-024068

PATIENT
  Age: 78 Year
  Sex: Female

DRUGS (1)
  1. PROPAFENONE HYDROCHLORIDE [Suspect]
     Active Substance: PROPAFENONE HYDROCHLORIDE
     Indication: Atrial fibrillation
     Dosage: DAILY
     Route: 048
     Dates: start: 2013, end: 2013

REACTIONS (3)
  - Drug ineffective [Recovered/Resolved]
  - Fall [Recovered/Resolved]
  - Ataxia [Recovered/Resolved]

NARRATIVE: CASE EVENT DATE: 20130101
